FAERS Safety Report 7075217-0 (Version None)
Quarter: 2010Q4

REPORT INFORMATION
  Report Type: 
  Country: None (occurrence: None)
  Receive Date: 20101030
  Receipt Date: 20100722
  Transmission Date: 20110411
  Serious: No
  Sender: FDA-Public Use
  Company Number: US-WYE-H15893310

PATIENT
  Age: 44 Year
  Sex: Male
  Weight: 93.07 kg

DRUGS (1)
  1. ALAVERT [Suspect]
     Indication: HYPERSENSITIVITY
     Route: 048

REACTIONS (1)
  - DRUG EFFECT DECREASED [None]
